FAERS Safety Report 21772399 (Version 1)
Quarter: 2022Q4

REPORT INFORMATION
  Report Type: Spontaneous
  Country: JP (occurrence: JP)
  Receive Date: 20221223
  Receipt Date: 20221223
  Transmission Date: 20230113
  Serious: Yes (Other)
  Sender: FDA-Public Use
  Company Number: JP-MSD-M2022-53749

PATIENT
  Age: 65 Year
  Sex: Male

DRUGS (3)
  1. KEYTRUDA [Suspect]
     Active Substance: PEMBROLIZUMAB
     Indication: Head and neck cancer
     Dosage: 200 MILLIGRAM, Q3W
     Route: 041
     Dates: start: 20221123, end: 20221123
  2. CISPLATIN [Suspect]
     Active Substance: CISPLATIN
     Indication: Head and neck cancer
     Dosage: UNK
     Route: 065
     Dates: start: 20221123, end: 2022
  3. FLUOROURACIL [Suspect]
     Active Substance: FLUOROURACIL
     Indication: Head and neck cancer
     Dosage: UNK
     Route: 065
     Dates: start: 20221123, end: 2022

REACTIONS (1)
  - Myelosuppression [Unknown]

NARRATIVE: CASE EVENT DATE: 20221201
